FAERS Safety Report 16990488 (Version 1)
Quarter: 2019Q4

REPORT INFORMATION
  Report Type: Report from Study
  Country: GB (occurrence: GB)
  Receive Date: 20191104
  Receipt Date: 20191104
  Transmission Date: 20200122
  Serious: Yes (Other)
  Sender: FDA-Public Use
  Company Number: GB-MYLANLABS-2019M1104121

PATIENT
  Sex: Female

DRUGS (1)
  1. BRABIO 20 MG/ML, SOLUTION FOR INJECTION, PRE-FILLED SYRINGE [Suspect]
     Active Substance: GLATIRAMER ACETATE
     Indication: MULTIPLE SCLEROSIS
     Dosage: 20MG/1ML, QD
     Route: 058
     Dates: start: 2019

REACTIONS (3)
  - Blindness [Unknown]
  - Injection site pain [Unknown]
  - Needle issue [Unknown]
